FAERS Safety Report 6501504-8 (Version None)
Quarter: 2009Q4

REPORT INFORMATION
  Report Type: 
  Country: None (occurrence: None)
  Receive Date: 20091216
  Receipt Date: 20091209
  Transmission Date: 20100525
  Serious: Yes (Hospitalization)
  Sender: FDA-Public Use
  Company Number: A0834622A

PATIENT
  Age: 40 Year
  Sex: Female
  Weight: 87.5 kg

DRUGS (5)
  1. LAPATINIB [Suspect]
     Dosage: 750MG PER DAY
     Route: 048
     Dates: start: 20090811
  2. TRASTUZUMAB [Suspect]
     Dosage: 4MGK WEEKLY
     Route: 042
     Dates: start: 20090811
  3. FLUOROURACIL [Suspect]
     Dosage: 500MGM2 CYCLIC
     Route: 042
     Dates: start: 20090825
  4. EPIRUBICIN [Suspect]
     Dosage: 75MGM2 CYCLIC
     Route: 042
     Dates: start: 20090825
  5. CYCLOPHOSPHAMIDE [Suspect]
     Dosage: 500MGM2 CYCLIC
     Route: 042
     Dates: start: 20090825

REACTIONS (2)
  - DEHYDRATION [None]
  - DIARRHOEA [None]
